FAERS Safety Report 10077025 (Version 1)
Quarter: 2014Q2

REPORT INFORMATION
  Report Type: Spontaneous
  Country: US (occurrence: US)
  Receive Date: 20140414
  Receipt Date: 20140414
  Transmission Date: 20141212
  Serious: Yes (Hospitalization)
  Sender: FDA-Public Use
  Company Number: US-JNJFOC-20140408843

PATIENT
  Age: 65 Year
  Sex: Female

DRUGS (7)
  1. IMBRUVICA [Suspect]
     Indication: CHRONIC LYMPHOCYTIC LEUKAEMIA
     Route: 048
     Dates: start: 20140321, end: 20140322
  2. GLUCOPHAGE [Concomitant]
  3. GLUCOTROL [Concomitant]
  4. LIPITOR [Concomitant]
  5. OMEPRAZOLE [Concomitant]
  6. PHENERGAN [Concomitant]
  7. PROCARDIA [Concomitant]

REACTIONS (4)
  - Diverticulum [Recovering/Resolving]
  - Abdominal pain upper [Recovering/Resolving]
  - Lip swelling [Recovering/Resolving]
  - Gastric infection [Recovering/Resolving]
